FAERS Safety Report 8241721-2 (Version None)
Quarter: 2012Q1

REPORT INFORMATION
  Report Type: 
  Country: None (occurrence: None)
  Receive Date: 20120328
  Receipt Date: 20120323
  Transmission Date: 20120608
  Serious: Yes (Other)
  Sender: FDA-Public Use
  Company Number: US-PFIZER INC-2012076184

PATIENT
  Age: 51 Year
  Sex: Female
  Weight: 54.4 kg

DRUGS (1)
  1. LYRICA [Suspect]
     Indication: COMPLEX REGIONAL PAIN SYNDROME
     Dosage: 150 MG, 1X/DAY
     Dates: start: 20111201, end: 20120304

REACTIONS (4)
  - DISORIENTATION [None]
  - THINKING ABNORMAL [None]
  - SPEECH DISORDER [None]
  - MIDDLE INSOMNIA [None]
